FAERS Safety Report 4366529-X (Version None)
Quarter: 2004Q2

REPORT INFORMATION
  Report Type: 
  Country: None (occurrence: None)
  Receive Date: 20040527
  Receipt Date: 20040517
  Transmission Date: 20050107
  Serious: Yes (Death, Hospitalization)
  Sender: FDA-Public Use
  Company Number: FR-ROCHE-367922

PATIENT
  Age: 39 Year
  Sex: Female

DRUGS (5)
  1. RIBAVIRIN [Suspect]
     Route: 065
     Dates: start: 20001215
  2. PEG-INTERFERON ALFA 2B [Suspect]
     Route: 065
     Dates: start: 20001215
  3. STAVUDINE [Concomitant]
     Indication: HIV INFECTION
     Dates: start: 19980615
  4. NEVIRAPINE [Concomitant]
     Indication: HIV INFECTION
     Dates: start: 19980615
  5. DIDANOSINE [Concomitant]
     Indication: HIV INFECTION
     Dates: start: 19980615

REACTIONS (14)
  - AMMONIA INCREASED [None]
  - ASPARTATE AMINOTRANSFERASE INCREASED [None]
  - BLOOD CREATININE INCREASED [None]
  - BLOOD POTASSIUM INCREASED [None]
  - COMA [None]
  - DYSPNOEA [None]
  - GAMMA-GLUTAMYLTRANSFERASE INCREASED [None]
  - HEPATIC FUNCTION ABNORMAL [None]
  - HYPERBILIRUBINAEMIA [None]
  - HYPOGLYCAEMIA [None]
  - LACTIC ACIDOSIS [None]
  - OEDEMA PERIPHERAL [None]
  - PROTHROMBIN LEVEL ABNORMAL [None]
  - TACHYCARDIA [None]
